FAERS Safety Report 19961649 (Version 1)
Quarter: 2021Q4

REPORT INFORMATION
  Report Type: Spontaneous
  Country: CN (occurrence: CN)
  Receive Date: 20211018
  Receipt Date: 20211018
  Transmission Date: 20220303
  Serious: Yes (Other)
  Sender: FDA-Public Use
  Company Number: CN-BAXTER-2021BAX026963

PATIENT
  Age: 44 Year
  Sex: Female
  Weight: 42.1 kg

DRUGS (10)
  1. CYCLOPHOSPHAMIDE [Suspect]
     Active Substance: CYCLOPHOSPHAMIDE
     Indication: Diffuse large B-cell lymphoma
     Dosage: CYCLOPHOSPHAMIDE 0.4G + 0.9% NS50ML, DAY 2
     Route: 042
     Dates: start: 20201121, end: 20201121
  2. SODIUM CHLORIDE [Suspect]
     Active Substance: SODIUM CHLORIDE
     Indication: Medication dilution
     Dosage: CYCLOPHOSPHAMIDE  0.4G + 0.9% NS50ML, DAY 2
     Route: 041
     Dates: start: 20201121, end: 20201121
  3. SODIUM CHLORIDE [Suspect]
     Active Substance: SODIUM CHLORIDE
     Dosage: RITUXIMAB INJECTION 500MG + 0.9% NS 600ML, DAY 1
     Route: 041
     Dates: start: 20201120, end: 20201120
  4. SODIUM CHLORIDE [Suspect]
     Active Substance: SODIUM CHLORIDE
     Dosage: DOXORUBICIN HYDROCHLORIDE FOR INJECTION 30MG + 0.9% NS 50ML, DAY 2
     Route: 041
     Dates: start: 20201121, end: 20201121
  5. SODIUM CHLORIDE [Suspect]
     Active Substance: SODIUM CHLORIDE
     Dosage: VINCRISTINE SULFATE FOR INJECTION 1MG + 0.9% NS 40ML, DAY 2
     Route: 041
     Dates: start: 20201121, end: 20201121
  6. RITUXIMAB [Suspect]
     Active Substance: RITUXIMAB
     Indication: Diffuse large B-cell lymphoma
     Route: 041
     Dates: start: 20201120, end: 20201120
  7. RITUXIMAB [Suspect]
     Active Substance: RITUXIMAB
     Route: 041
     Dates: start: 20201120, end: 20201120
  8. RITUXIMAB [Suspect]
     Active Substance: RITUXIMAB
     Dosage: RITUXIMAB INJECTION 500MG + 0.9% NS 600ML, DAY 1
     Route: 041
     Dates: start: 20201120, end: 20201120
  9. DOXORUBICIN HYDROCHLORIDE [Suspect]
     Active Substance: DOXORUBICIN HYDROCHLORIDE
     Indication: Diffuse large B-cell lymphoma
     Dosage: DOXORUBICIN HYDROCHLORIDE FOR INJECTION 30MG + 0.9% NS 50ML, DAY 2
     Route: 042
     Dates: start: 20201121, end: 20201121
  10. VINCRISTINE SULFATE [Suspect]
     Active Substance: VINCRISTINE SULFATE
     Indication: Diffuse large B-cell lymphoma
     Dosage: VINCRISTINE SULFATE FOR INJECTION 1MG + 0.9% NS 40ML, DAY 2
     Route: 042
     Dates: start: 20201121, end: 20201121

REACTIONS (2)
  - White blood cell count decreased [Recovering/Resolving]
  - Neutrophil count decreased [Recovering/Resolving]

NARRATIVE: CASE EVENT DATE: 20201125
